FAERS Safety Report 12934179 (Version 1)
Quarter: 2016Q4

REPORT INFORMATION
  Report Type: Spontaneous
  Country: AT (occurrence: AT)
  Receive Date: 20161111
  Receipt Date: 20161111
  Transmission Date: 20170207
  Serious: Yes (Disabling)
  Sender: FDA-Public Use
  Company Number: AT-MYLANLABS-2016M1048544

PATIENT

DRUGS (1)
  1. CIPROFLOXACIN ARCANA 250 MG - FILMTABLETTEN [Suspect]
     Active Substance: CIPROFLOXACIN
     Indication: PROSTATITIS
     Dosage: 2 DF, BID(2X250MG/DAY)
     Route: 048
     Dates: start: 20160609, end: 20160618

REACTIONS (10)
  - Paraesthesia [Unknown]
  - Activities of daily living impaired [None]
  - Tinnitus [Unknown]
  - Arthralgia [Unknown]
  - Depressed mood [Recovering/Resolving]
  - Dysstasia [Unknown]
  - Tendon pain [Unknown]
  - Fatigue [Unknown]
  - Disability [Unknown]
  - Condition aggravated [Unknown]

NARRATIVE: CASE EVENT DATE: 20160609
